FAERS Safety Report 10167530 (Version 1)
Quarter: 2014Q2

REPORT INFORMATION
  Report Type: Spontaneous
  Country: US (occurrence: ES)
  Receive Date: 20140512
  Receipt Date: 20140512
  Transmission Date: 20141212
  Serious: Yes (Other)
  Sender: FDA-Public Use
  Company Number: ES-FRI-1000067230

PATIENT
  Age: 63 Year
  Sex: Male

DRUGS (6)
  1. ROFLUMILAST [Suspect]
     Indication: CHRONIC OBSTRUCTIVE PULMONARY DISEASE
     Dosage: 500 MCG
     Route: 048
     Dates: start: 20140328
  2. SPIRIVA [Concomitant]
  3. RILAST FORTE [Concomitant]
  4. RHINOCORT [Concomitant]
  5. SIMVASTATIN [Concomitant]
     Dates: start: 2012
  6. ALLOPURINOL [Concomitant]
     Dates: start: 2012

REACTIONS (1)
  - Respiratory tract infection [Not Recovered/Not Resolved]
